FAERS Safety Report 9382371 (Version 3)
Quarter: 2014Q2

REPORT INFORMATION
  Report Type: Report from Study
  Country: CN (occurrence: CN)
  Receive Date: 20130703
  Receipt Date: 20140512
  Transmission Date: 20141212
  Serious: Yes (Death)
  Sender: FDA-Public Use
  Company Number: PHHY2013CN068741

PATIENT
  Age: 79 Year
  Sex: Female

DRUGS (2)
  1. EXJADE [Suspect]
     Indication: MYELODYSPLASTIC SYNDROME
     Dosage: 920 MG, QD
     Route: 048
     Dates: start: 20120912
  2. EXJADE [Suspect]
     Indication: IRON OVERLOAD

REACTIONS (1)
  - Death [Fatal]
